FAERS Safety Report 23250242 (Version 1)
Quarter: 2023Q4

REPORT INFORMATION
  Report Type: Spontaneous
  Country: MX (occurrence: MX)
  Receive Date: 20231201
  Receipt Date: 20231201
  Transmission Date: 20240110
  Serious: Yes (Death, Other)
  Sender: FDA-Public Use
  Company Number: MX-002147023-NVSC2023MX253686

PATIENT
  Age: 78 Year
  Sex: Male

DRUGS (1)
  1. EXELON [Suspect]
     Active Substance: RIVASTIGMINE TARTRATE
     Indication: Product used for unknown indication
     Dosage: 13.3 MG, QD (PATCH 15 (CM2), 27 MG RIVASTIGMINE BASE)
     Route: 062
     Dates: start: 20230101

REACTIONS (1)
  - Pneumonitis aspiration [Fatal]
